FAERS Safety Report 7753914-9 (Version None)
Quarter: 2011Q3

REPORT INFORMATION
  Report Type: 
  Country: None (occurrence: None)
  Receive Date: 20110915
  Receipt Date: 20110907
  Transmission Date: 20111222
  Serious: Yes (Other)
  Sender: FDA-Public Use
  Company Number: FR-ASTRAZENECA-2011SE54124

PATIENT

DRUGS (1)
  1. IRESSA [Suspect]
     Route: 048

REACTIONS (1)
  - NEPHROTIC SYNDROME [None]
